FAERS Safety Report 17187818 (Version 12)
Quarter: 2025Q2

REPORT INFORMATION
  Report Type: Spontaneous
  Country: PK (occurrence: PK)
  Receive Date: 20191221
  Receipt Date: 20250516
  Transmission Date: 20250717
  Serious: Yes (Hospitalization, Other)
  Sender: AMGEN
  Company Number: PK-PFIZER INC-2019541849

PATIENT
  Age: 35 Year
  Sex: Female
  Weight: 72 kg

DRUGS (18)
  1. ENBREL [Suspect]
     Active Substance: ETANERCEPT
     Indication: Rheumatoid arthritis
     Dosage: 50 MG, WEEKLY
     Route: 058
     Dates: start: 201912
  2. ENBREL [Suspect]
     Active Substance: ETANERCEPT
     Route: 058
  3. ENBREL [Suspect]
     Active Substance: ETANERCEPT
     Dosage: 50 MG, MONTHLY
     Route: 058
  4. ASPIRIN [Concomitant]
     Active Substance: ASPIRIN
  5. Tryptal [Concomitant]
  6. NEXIUM [Concomitant]
     Active Substance: ESOMEPRAZOLE MAGNESIUM
  7. FOLIC ACID [Concomitant]
     Active Substance: FOLIC ACID
     Dosage: 10 MG, WEEKLY (2 TABLETS ON EVERY THURSDAY)
  8. FOLIC ACID [Concomitant]
     Active Substance: FOLIC ACID
  9. FOLIC ACID [Concomitant]
     Active Substance: FOLIC ACID
     Dosage: 5 MG, WEEKLY (1 TAB EVERY THURSDAY)
  10. METHOTREXATE [Concomitant]
     Active Substance: METHOTREXATE
     Dosage: 100 MG, WEEKLY
  11. METHOTREXATE [Concomitant]
     Active Substance: METHOTREXATE
     Dosage: 10 MG, WEEKLY (ONE TABLET ON EVERY FRIDAY)
  12. METHOTREXATE [Concomitant]
     Active Substance: METHOTREXATE
     Dosage: 5 MG, WEEKLY (2.5 MG 2 TABS EVERY FRIDAY)
  13. METHOTREXATE [Concomitant]
     Active Substance: METHOTREXATE
     Dosage: 7.5 MG, WEEKLY(2.5MG 3 TAB EVERY FRIDAY)
  14. DELTACORTRIL [Concomitant]
     Active Substance: PREDNISOLONE
     Dosage: 5 MG, DAILY
  15. Celbexx [Concomitant]
     Dosage: 200 MG, 2X/DAY
  16. Risek [Concomitant]
     Dosage: 20 MG, DAILY
  17. Caldree [Concomitant]
     Dosage: 1 DF, DAILY
  18. KETOPROFEN [Concomitant]
     Active Substance: KETOPROFEN

REACTIONS (9)
  - Middle cerebral artery stroke [Unknown]
  - Foot deformity [Unknown]
  - Hip arthroplasty [Unknown]
  - Paraesthesia [Recovered/Resolved]
  - Antiphospholipid syndrome [Unknown]
  - Limb operation [Unknown]
  - Joint swelling [Unknown]
  - Musculoskeletal stiffness [Unknown]
  - Off label use [Unknown]
